FAERS Safety Report 5202590-8 (Version None)
Quarter: 2006Q4

REPORT INFORMATION
  Report Type: 
  Country: None (occurrence: None)
  Receive Date: 20061016
  Receipt Date: 20060821
  Transmission Date: 20070319
  Serious: No
  Sender: FDA-Public Use
  Company Number: 2006SP003083

PATIENT
  Age: 52 Year
  Sex: Female
  Weight: 59.8748 kg

DRUGS (2)
  1. LUNESTA [Suspect]
     Indication: INSOMNIA
     Dosage: 1.5 MG ; HS; ORAL
     Route: 048
     Dates: start: 20060101, end: 20060801
  2. HYZAAR [Concomitant]

REACTIONS (1)
  - DYSGEUSIA [None]
